FAERS Safety Report 8826175 (Version 1)
Quarter: 2012Q4

REPORT INFORMATION
  Report Type: 
  Country: JP (occurrence: JP)
  Receive Date: 20121005
  Receipt Date: 20121005
  Transmission Date: 20130627
  Serious: No
  Sender: FDA-Public Use
  Company Number: PHHY2012JP085382

PATIENT
  Age: 79 Year
  Sex: Male

DRUGS (3)
  1. CO-DIOVAN [Suspect]
     Indication: HYPERTENSION
     Dosage: 1 DF, daily
     Route: 048
  2. NORVASC [Concomitant]
     Route: 048
  3. PRAVATIN [Concomitant]
     Route: 048

REACTIONS (1)
  - Chromaturia [Unknown]
